FAERS Safety Report 7698843-4 (Version None)
Quarter: 2011Q3

REPORT INFORMATION
  Report Type: 
  Country: None (occurrence: None)
  Receive Date: 20110819
  Receipt Date: 20081105
  Transmission Date: 20111222
  Serious: Yes (Other)
  Sender: FDA-Public Use
  Company Number: US-PFIZER INC-2008093529

PATIENT
  Sex: Female

DRUGS (12)
  1. CYMBALTA [Interacting]
     Route: 048
     Dates: start: 20080901
  2. NEXIUM [Concomitant]
     Indication: GASTROOESOPHAGEAL REFLUX DISEASE
     Route: 048
  3. CYMBALTA [Interacting]
     Indication: DEPRESSION
     Route: 048
     Dates: start: 20071201, end: 20080101
  4. ASPIRIN [Concomitant]
     Route: 048
  5. DOXEPIN HCL [Suspect]
     Route: 048
     Dates: start: 20080828
  6. XANAX [Concomitant]
     Indication: ANXIETY
     Route: 048
  7. ZONEGRAN [Concomitant]
     Indication: MIGRAINE
     Route: 048
  8. TOPROL-XL [Concomitant]
     Indication: HYPERTENSION
     Route: 048
  9. NAPROSYN [Concomitant]
     Indication: MUSCLE RELAXANT THERAPY
     Route: 048
  10. BENTYL [Concomitant]
     Indication: ABDOMINAL PAIN UPPER
     Route: 048
  11. BENICAR HCT [Interacting]
     Dosage: 20/12.5 MG,FREQUENCY: QD
     Route: 048
  12. VICODIN [Concomitant]
     Dosage: 5/500 MG
     Route: 048

REACTIONS (8)
  - DIZZINESS [None]
  - MUSCULOSKELETAL STIFFNESS [None]
  - INSOMNIA [None]
  - MOOD SWINGS [None]
  - SUICIDAL IDEATION [None]
  - LUMBAR SPINAL STENOSIS [None]
  - MUSCULOSKELETAL PAIN [None]
  - DRUG INTERACTION [None]
